FAERS Safety Report 10872915 (Version 2)
Quarter: 2017Q3

REPORT INFORMATION
  Report Type: Spontaneous
  Country: NO (occurrence: NO)
  Receive Date: 20150227
  Receipt Date: 20170905
  Transmission Date: 20171127
  Serious: Yes (Death, Other)
  Sender: FDA-Public Use
  Company Number: NO-TEVA-543183ISR

PATIENT
  Age: 65 Year
  Sex: Female

DRUGS (15)
  1. MERCAPTOPURINE. [Suspect]
     Active Substance: MERCAPTOPURINE
     Indication: T-CELL TYPE ACUTE LEUKAEMIA
     Dosage: ON DAYS 64-111 (35MG/M2)
     Route: 048
  2. METHOTREXATE SODIUM. [Suspect]
     Active Substance: METHOTREXATE SODIUM
     Dosage: 15MG ON DAYS 15, 29, 43 AND 64 (15MG)
     Route: 037
  3. CYCLOPHOSPHAMIDE. [Suspect]
     Active Substance: CYCLOPHOSPHAMIDE
     Indication: T-CELL TYPE ACUTE LEUKAEMIA
     Dosage: 750MG/M2 ON DAYS 15,22 AND 29 (750MG/M2)
     Route: 042
  4. DAUNORUBICIN HYDROCHLORIDE. [Suspect]
     Active Substance: DAUNORUBICIN HYDROCHLORIDE
     Indication: T-CELL TYPE ACUTE LEUKAEMIA
     Dosage: ON DAYS 43, 45, 47 (50 MG/M2)
     Route: 042
  5. G-CSF [Suspect]
     Active Substance: GRANULOCYTE COLONY-STIMULATING FACTOR NOS
     Indication: PERIPHERAL BLOOD STEM CELL APHERESIS
     Dosage: 10 MICROGRAM/KG DAILY;
     Route: 065
  6. ERWINASE [Suspect]
     Active Substance: ASPARAGINASE ERWINIA CHRYSANTHEMI
     Indication: T-CELL TYPE ACUTE LEUKAEMIA
     Dosage: 10000 IU ON DAYS 8-21 (10000 IU)
     Route: 042
  7. CYTARABINE. [Suspect]
     Active Substance: CYTARABINE
     Dosage: ON DAYS 78,92,106 (40MG)
     Route: 037
  8. PREDNISONE. [Suspect]
     Active Substance: PREDNISONE
     Dosage: 40MG/M2 ON DAYS 1-29, TAPERING TO DAY 35 (40 MG/M2)
     Route: 048
  9. DOXORUBICIN HYDROCHLORIDE. [Suspect]
     Active Substance: DOXORUBICIN HYDROCHLORIDE
     Indication: T-CELL TYPE ACUTE LEUKAEMIA
     Dosage: 30MG/M2 ON DAYS 8, 15 AND 22 (30MG/M2)
     Route: 042
  10. VINCRISTINE SULFATE. [Suspect]
     Active Substance: VINCRISTINE SULFATE
     Indication: T-CELL TYPE ACUTE LEUKAEMIA
     Dosage: MAX OF 2.0MG ON DAYS 1,8,15,22 AND 29 (1.5MG/M2)
     Route: 042
  11. PREDNISONE. [Suspect]
     Active Substance: PREDNISONE
     Indication: T-CELL TYPE ACUTE LEUKAEMIA
     Dosage: 10MG
     Route: 037
  12. ERWINASE [Suspect]
     Active Substance: ASPARAGINASE ERWINIA CHRYSANTHEMI
     Dosage: 10 IU ON DAYS 8-21 (10 IU)
     Route: 042
  13. METHOTREXATE SODIUM. [Suspect]
     Active Substance: METHOTREXATE SODIUM
     Indication: T-CELL TYPE ACUTE LEUKAEMIA
     Dosage: ON DAYS 64, 78 (1500 MG/M2)
     Route: 042
  14. TIOGUANINE [Suspect]
     Active Substance: THIOGUANINE ANHYDROUS
     Indication: T-CELL TYPE ACUTE LEUKAEMIA
     Dosage: ON DAYS 43-47 (150 MG/M2)
     Route: 042
  15. CYTARABINE. [Suspect]
     Active Substance: CYTARABINE
     Indication: T-CELL TYPE ACUTE LEUKAEMIA
     Dosage: ON DAYS 43-47 (200MG/M2)
     Route: 042

REACTIONS (4)
  - Intracranial venous sinus thrombosis [Fatal]
  - Haematotoxicity [Unknown]
  - Death [Fatal]
  - Febrile neutropenia [Unknown]
